FAERS Safety Report 9745738 (Version 2)
Quarter: 2013Q4

REPORT INFORMATION
  Report Type: Report from Study
  Country: BE (occurrence: BE)
  Receive Date: 20131211
  Receipt Date: 20131223
  Transmission Date: 20140711
  Serious: Yes (Hospitalization)
  Sender: FDA-Public Use
  Company Number: BE-ROCHE-1311947

PATIENT
  Age: 59 Year
  Sex: Female
  Weight: 65 kg

DRUGS (10)
  1. TRASTUZUMAB [Suspect]
     Indication: BREAST CANCER
     Dosage: LOADING DOSE
     Route: 042
     Dates: start: 20130812
  2. TRASTUZUMAB [Suspect]
     Dosage: MAINTENANCE DOSE, LAST DOSE PRIOR TO ADVERSE EVENT: 14/OCT/2013 AT THE DOSE OF 372 MG
     Route: 042
     Dates: end: 20131202
  3. RIOPAN (BELGIUM) [Concomitant]
     Route: 065
     Dates: start: 20131021, end: 20131105
  4. OMEPRAZOLE [Concomitant]
     Route: 065
     Dates: start: 20130820
  5. BEFACT FORTE [Concomitant]
     Route: 065
     Dates: start: 20130901
  6. PACLITAXEL [Concomitant]
     Route: 065
     Dates: start: 20130812, end: 20131028
  7. CLEXANE [Concomitant]
     Route: 065
     Dates: start: 20131127, end: 20131129
  8. FOLAVIT [Concomitant]
     Route: 065
     Dates: start: 20131129
  9. PERTUZUMAB [Suspect]
     Indication: BREAST CANCER
     Dosage: LOADING DOSE
     Route: 042
     Dates: start: 20130812
  10. PERTUZUMAB [Suspect]
     Dosage: MAINTENANCE DOSE, LAST DOSE PRIOR TO THE EVENT: 14/OCT/2013
     Route: 042

REACTIONS (1)
  - Cardiotoxicity [Recovered/Resolved with Sequelae]
